FAERS Safety Report 23740803 (Version 1)
Quarter: 2024Q2

REPORT INFORMATION
  Report Type: Spontaneous
  Country: AU (occurrence: AU)
  Receive Date: 20240415
  Receipt Date: 20240415
  Transmission Date: 20240716
  Serious: Yes (Other)
  Sender: FDA-Public Use
  Company Number: AU-BRISTOL-MYERS SQUIBB COMPANY-2024-055440

PATIENT
  Sex: Female

DRUGS (4)
  1. POMALIDOMIDE [Suspect]
     Active Substance: POMALIDOMIDE
     Indication: Plasma cell myeloma
  2. DARZALEX [Suspect]
     Active Substance: DARATUMUMAB
     Indication: Plasma cell myeloma
     Route: 058
  3. DEXAMETHASONE [Suspect]
     Active Substance: DEXAMETHASONE
     Indication: Plasma cell myeloma
  4. HUMAN IMMUNOGLOBULIN G [Concomitant]
     Active Substance: HUMAN IMMUNOGLOBULIN G
     Indication: Hypogammaglobulinaemia
     Route: 042

REACTIONS (23)
  - Ageusia [Unknown]
  - Bone pain [Unknown]
  - Brain fog [Unknown]
  - Cold sweat [Unknown]
  - Deafness transitory [Unknown]
  - Defaecation urgency [Unknown]
  - Dysphagia [Unknown]
  - Eructation [Unknown]
  - Fatigue [Unknown]
  - Gait disturbance [Unknown]
  - Gingival ulceration [Unknown]
  - Insomnia [Unknown]
  - Irritability [Unknown]
  - Loss of bladder sensation [Unknown]
  - Nausea [Unknown]
  - Neuropathy peripheral [Unknown]
  - Neutropenia [Unknown]
  - Onychomalacia [Unknown]
  - Paraesthesia oral [Unknown]
  - Pruritus [Unknown]
  - Tinnitus [Unknown]
  - Tremor [Unknown]
  - Vision blurred [Unknown]
